FAERS Safety Report 9333516 (Version 1)
Quarter: 2013Q2

REPORT INFORMATION
  Report Type: Spontaneous
  Country: US (occurrence: US)
  Receive Date: 20130606
  Receipt Date: 20130606
  Transmission Date: 20140414
  Serious: No
  Sender: FDA-Public Use
  Company Number: US-AMGEN-USASP2012077682

PATIENT
  Age: 69 Year
  Sex: Female

DRUGS (5)
  1. XGEVA [Suspect]
     Indication: BREAST CANCER METASTATIC
     Dosage: 120 MG, Q4WK
     Dates: start: 201204
  2. LETROZOLE [Concomitant]
     Dosage: UNK
  3. SIMVASTATIN [Concomitant]
     Dosage: 40 MG, UNK
  4. CINNAMON OIL [Concomitant]
     Dosage: 1000 MG, UNK
  5. CITALOPRAM [Concomitant]
     Dosage: 20 MG, UNK

REACTIONS (2)
  - Micturition urgency [Unknown]
  - Tumour marker increased [Unknown]
